FAERS Safety Report 24205685 (Version 2)
Quarter: 2024Q3

REPORT INFORMATION
  Report Type: Spontaneous
  Country: JP (occurrence: JP)
  Receive Date: 20240813
  Receipt Date: 20240827
  Transmission Date: 20241016
  Serious: Yes (Life-Threatening, Hospitalization)
  Sender: TEVA
  Company Number: JP-TEVA-VS-3230165

PATIENT
  Age: 40 Year
  Sex: Female

DRUGS (5)
  1. PREDNISOLONE [Suspect]
     Active Substance: PREDNISOLONE
     Indication: Immunosuppressant drug therapy
     Route: 065
  2. EVEROLIMUS [Suspect]
     Active Substance: EVEROLIMUS
     Indication: Immunosuppressant drug therapy
     Route: 065
  3. DEXAMETHASONE [Suspect]
     Active Substance: DEXAMETHASONE
     Indication: COVID-19
     Route: 065
  4. TACROLIMUS [Suspect]
     Active Substance: TACROLIMUS
     Indication: Immunosuppressant drug therapy
     Route: 065
  5. REMDESIVIR [Concomitant]
     Active Substance: REMDESIVIR
     Indication: COVID-19
     Route: 065

REACTIONS (3)
  - Endocarditis [Recovering/Resolving]
  - Off label use [Unknown]
  - Corynebacterium infection [Recovering/Resolving]
